FAERS Safety Report 7392280-8 (Version None)
Quarter: 2011Q2

REPORT INFORMATION
  Report Type: 
  Country: None (occurrence: None)
  Receive Date: 20110404
  Receipt Date: 20110324
  Transmission Date: 20111010
  Serious: No
  Sender: FDA-Public Use
  Company Number: US-ELI_LILLY_AND_COMPANY-US201102007055

PATIENT
  Age: 76 Year
  Sex: Female

DRUGS (11)
  1. CYMBALTA [Suspect]
     Indication: NEUROPATHY PERIPHERAL
     Dosage: 30 MG, DAILY (1/D)
  2. DRUG USED IN DIABETES [Concomitant]
  3. ANTIDEPRESSANTS [Concomitant]
  4. CYMBALTA [Suspect]
     Dosage: 60 MG, DAILY (1/D)
  5. LORAZEPAM [Concomitant]
  6. NORVASC [Concomitant]
  7. BETA BLOCKING AGENTS [Concomitant]
  8. ARICEPT [Concomitant]
  9. PERCOCET [Concomitant]
  10. INSULIN [Concomitant]
  11. AMBIEN [Concomitant]

REACTIONS (1)
  - NO ADVERSE EVENT [None]
